FAERS Safety Report 14942244 (Version 1)
Quarter: 2018Q2

REPORT INFORMATION
  Report Type: Spontaneous
  Country: DE (occurrence: DE)
  Receive Date: 20180528
  Receipt Date: 20180528
  Transmission Date: 20180711
  Serious: Yes (Hospitalization)
  Sender: FDA-Public Use
  Company Number: DE-DEXPHARM-20180362

PATIENT
  Age: 72 Year
  Sex: Male
  Weight: 104 kg

DRUGS (9)
  1. ASPIRIN. [Suspect]
     Active Substance: ASPIRIN
     Dosage: 500 MG
  2. ENALAPRIL [Concomitant]
     Active Substance: ENALAPRIL
     Dosage: 20 MG, 1-0-1-0
  3. LERCANIDIPIN [Concomitant]
     Active Substance: LERCANIDIPINE
     Dosage: 20 MG, 0-1-0-0
  4. TOUJEO 300EINHEITEN/ML SOLOSTAR 1,5ML PEN [Concomitant]
     Dosage: 40 IE , 0-0-0-1
  5. DICLOFENAC [Suspect]
     Active Substance: DICLOFENAC
  6. HYDROCHLOROTHIAZID [Concomitant]
     Active Substance: HYDROCHLOROTHIAZIDE
     Dosage: 25 MG, 0-1-0-0
  7. AMARYL [Concomitant]
     Active Substance: GLIMEPIRIDE
     Dosage: 6 MG, 1-0-0-0
  8. METOPROLOL. [Concomitant]
     Active Substance: METOPROLOL
     Dosage: 47.5 MG, 1.5-0-1.5-0
  9. EBRANTIL [Concomitant]
     Active Substance: URAPIDIL
     Dosage: 60 MG, 1-0-1-0

REACTIONS (3)
  - Haematochezia [Unknown]
  - Fatigue [Unknown]
  - Pallor [Unknown]
